FAERS Safety Report 7161775-4 (Version None)
Quarter: 2010Q4

REPORT INFORMATION
  Report Type: 
  Country: None (occurrence: None)
  Receive Date: 20101215
  Receipt Date: 20101206
  Transmission Date: 20110411
  Serious: Yes (Hospitalization, Other)
  Sender: FDA-Public Use
  Company Number: PHHY2010BE70180

PATIENT
  Sex: Male

DRUGS (13)
  1. RASILEZ [Suspect]
     Indication: HYPERTENSION
     Dosage: 150 MG DAILY
     Dates: start: 20091202, end: 20100401
  2. ASPIRIN [Concomitant]
  3. NOBITEN [Concomitant]
     Dosage: 5 MG, 0.5 TABLET
  4. PLAVIX [Concomitant]
  5. ZANIDIP [Concomitant]
     Dosage: 10 MG
  6. BUMEX [Concomitant]
     Dosage: 5 MG 0.5 TABLET
  7. ZOCOR [Concomitant]
  8. CORUNO [Concomitant]
  9. MINITRAN [Concomitant]
     Route: 062
  10. ZANTAC [Concomitant]
  11. GAVISCON [Concomitant]
  12. COVERSYL [Concomitant]
  13. HIPREX [Concomitant]
     Dosage: 5000 MG

REACTIONS (8)
  - ASTHENIA [None]
  - CARDIAC ENZYMES INCREASED [None]
  - CARDIAC FAILURE ACUTE [None]
  - GENERALISED OEDEMA [None]
  - INFLAMMATION [None]
  - MALAISE [None]
  - NOCTURNAL DYSPNOEA [None]
  - RENAL FAILURE [None]
